FAERS Safety Report 4552246-X (Version None)
Quarter: 2004Q4

REPORT INFORMATION
  Report Type: 
  Country: None (occurrence: None)
  Receive Date: 20041217
  Receipt Date: 20041019
  Transmission Date: 20050328
  Serious: No
  Sender: FDA-Public Use
  Company Number: 2004-BP-10397BP

PATIENT

DRUGS (1)
  1. SPIRIVA HANDIHALER (TIOTROPIUM BROMIDE) [Suspect]

REACTIONS (2)
  - RASH PRURITIC [None]
  - URTICARIA [None]
